FAERS Safety Report 12477374 (Version 1)
Quarter: 2016Q2

REPORT INFORMATION
  Report Type: Report from Study
  Country: BR (occurrence: BR)
  Receive Date: 20160617
  Receipt Date: 20160617
  Transmission Date: 20160815
  Serious: Yes (Hospitalization)
  Sender: FDA-Public Use
  Company Number: PHHY2016BR082152

PATIENT
  Sex: Male

DRUGS (2)
  1. ONBREZ BREEZHALER [Suspect]
     Active Substance: INDACATEROL
     Indication: EMPHYSEMA
     Route: 055
  2. ONBREZ BREEZHALER [Suspect]
     Active Substance: INDACATEROL
     Indication: ANTICOAGULANT THERAPY

REACTIONS (4)
  - Endocarditis bacterial [Recovering/Resolving]
  - Cardiac disorder [Recovering/Resolving]
  - Weight fluctuation [Recovering/Resolving]
  - Product use issue [Unknown]
